FAERS Safety Report 4294965-9 (Version None)
Quarter: 2004Q1

REPORT INFORMATION
  Report Type: 
  Country: None (occurrence: None)
  Receive Date: 20040216
  Receipt Date: 20030318
  Transmission Date: 20041129
  Serious: Yes (Life-Threatening)
  Sender: FDA-Public Use
  Company Number: US-GLAXOSMITHKLINE-A0400684A

PATIENT
  Age: 36 Year
  Sex: Male
  Weight: 89.1 kg

DRUGS (8)
  1. LAMICTAL [Suspect]
     Dosage: 50MG THREE TIMES PER DAY
     Route: 048
     Dates: start: 20030207, end: 20030318
  2. TRILEPTAL [Concomitant]
     Dosage: 300MG TWICE PER DAY
     Dates: start: 20030128, end: 20030318
  3. INDERAL [Concomitant]
     Indication: HYPERTENSION
     Dosage: 30MG TWICE PER DAY
     Dates: start: 20030129
  4. TOPROL-XL [Concomitant]
     Indication: HYPERTENSION
     Dates: start: 20030128, end: 20030321
  5. REMERON [Concomitant]
     Indication: DEPRESSION
     Dosage: 60MG AT NIGHT
     Dates: start: 20030128
  6. EFFEXOR XR [Concomitant]
     Indication: DEPRESSION
     Dosage: 75MG THREE TIMES PER DAY
     Dates: start: 20030128
  7. SEROQUEL [Concomitant]
     Indication: MANIA
     Dosage: 50MG AS REQUIRED
     Dates: start: 20030218
  8. PEPCID [Concomitant]
     Dosage: 20MG TWICE PER DAY
     Dates: start: 20030128

REACTIONS (4)
  - DYSPHAGIA [None]
  - ILL-DEFINED DISORDER [None]
  - MOUTH ULCERATION [None]
  - MUCOCUTANEOUS RASH [None]
